FAERS Safety Report 8154316 (Version 5)
Quarter: 2012Q4

REPORT INFORMATION
  Report Type: 
  Country: JP (occurrence: JP)
  Receive Date: 20110923
  Receipt Date: 20120924
  Transmission Date: 20130627
  Serious: Yes (Life-Threatening, Hospitalization, Other)
  Sender: FDA-Public Use
  Company Number: JP-ASTRAZENECA-2011SE56245

PATIENT
  Age: 16874 Day
  Sex: Male
  Weight: 63.7 kg

DRUGS (16)
  1. SEROQUEL [Suspect]
     Indication: SCHIZOPHRENIA
     Route: 048
     Dates: end: 20110830
  2. SEROQUEL [Suspect]
     Indication: SCHIZOPHRENIA
     Route: 048
     Dates: start: 20110831, end: 20110912
  3. ZYPREXA [Suspect]
     Indication: SCHIZOPHRENIA
     Route: 048
     Dates: end: 20110830
  4. ZYPREXA [Suspect]
     Indication: SCHIZOPHRENIA
     Route: 048
     Dates: start: 20110831, end: 20110912
  5. HYPNOTICS AND SEDATIVES [Concomitant]
     Dates: end: 20110913
  6. SELBEX [Concomitant]
     Indication: GASTRIC ULCER
     Dates: end: 20110913
  7. DEPROMEL [Concomitant]
     Indication: SCHIZOPHRENIA
     Dates: end: 20110913
  8. ARTANE [Concomitant]
     Indication: PARKINSONISM
     Dates: end: 20110913
  9. LEXOTAN [Concomitant]
     Indication: SCHIZOPHRENIA
     Dates: end: 20110913
  10. ALOSITOL [Concomitant]
     Indication: GOUT
     Dates: end: 20110912
  11. ROHYPNOL [Concomitant]
     Indication: SCHIZOPHRENIA
     Dates: end: 20110913
  12. CONTOMIN [Concomitant]
     Indication: SCHIZOPHRENIA
     Dates: end: 20110912
  13. PYRETHIA [Concomitant]
     Indication: PARKINSONISM
     Dates: end: 20110913
  14. RISPERDAL [Concomitant]
     Indication: SCHIZOPHRENIA
     Dates: end: 20110906
  15. GENTAMICIN SULFATE [Concomitant]
  16. IMMUNOGLOBULIN [Concomitant]

REACTIONS (4)
  - Septic shock [Recovered/Resolved]
  - Disseminated intravascular coagulation [Recovered/Resolved]
  - Agranulocytosis [Recovered/Resolved]
  - Acute respiratory distress syndrome [Recovered/Resolved]
